FAERS Safety Report 7105156-8 (Version None)
Quarter: 2010Q4

REPORT INFORMATION
  Report Type: 
  Country: None (occurrence: None)
  Receive Date: 20101116
  Receipt Date: 20100811
  Transmission Date: 20110411
  Serious: No
  Sender: FDA-Public Use
  Company Number: US-ABBOTT-10P-163-0662744-00

PATIENT
  Sex: Male
  Weight: 112.59 kg

DRUGS (7)
  1. SIMCOR [Suspect]
     Indication: BLOOD CHOLESTEROL INCREASED
     Dosage: DAILY DOSE: 1-500/20 MG TAB
     Route: 048
     Dates: start: 20100809
  2. SIMCOR [Suspect]
     Indication: ARTERIOSCLEROSIS
  3. LISINOPRIL [Concomitant]
     Indication: HYPERTENSION
  4. JANUMET [Concomitant]
     Indication: DIABETES MELLITUS
  5. XYZAL [Concomitant]
     Indication: HYPERSENSITIVITY
  6. AMLODIPINE [Concomitant]
     Indication: HYPERTENSION
  7. ASPIRIN [Concomitant]
     Indication: PRODUCT USED FOR UNKNOWN INDICATION
     Dosage: AT HOUR OF SLEEP 30 MIN PRIOR TO SIMCOR
     Route: 048

REACTIONS (8)
  - FATIGUE [None]
  - FEELING HOT [None]
  - FLUSHING [None]
  - PARAESTHESIA [None]
  - PRURITUS [None]
  - SKIN BURNING SENSATION [None]
  - SKIN TIGHTNESS [None]
  - SLEEP DISORDER [None]
